FAERS Safety Report 7860176-0 (Version None)
Quarter: 2011Q4

REPORT INFORMATION
  Report Type: 
  Country: None (occurrence: None)
  Receive Date: 20111027
  Receipt Date: 20111020
  Transmission Date: 20120403
  Serious: Yes (Hospitalization, Other)
  Sender: FDA-Public Use
  Company Number: GB-PFIZER INC-2011254792

PATIENT
  Age: 17 Year

DRUGS (5)
  1. MORPHINE SULFATE [Suspect]
  2. PROPOFOL [Suspect]
  3. HYDROCORTISONE [Suspect]
  4. GABAPENTIN [Suspect]
  5. VASOPRESSIN INJECTION [Suspect]

REACTIONS (1)
  - RHABDOMYOLYSIS [None]
